FAERS Safety Report 19601515 (Version 1)
Quarter: 2021Q3

REPORT INFORMATION
  Report Type: Report from Study
  Country: US (occurrence: US)
  Receive Date: 20210722
  Receipt Date: 20210722
  Transmission Date: 20211014
  Serious: Yes (Disabling)
  Sender: FDA-Public Use
  Company Number: US-JNJFOC-20210741232

PATIENT

DRUGS (1)
  1. UPTRAVI [Suspect]
     Active Substance: SELEXIPAG
     Indication: PRODUCT USED FOR UNKNOWN INDICATION
     Route: 065

REACTIONS (1)
  - Disability [Unknown]
